FAERS Safety Report 11031756 (Version 1)
Quarter: 2015Q2

REPORT INFORMATION
  Report Type: Spontaneous
  Country: US (occurrence: US)
  Receive Date: 20150415
  Receipt Date: 20150415
  Transmission Date: 20150821
  Serious: No
  Sender: FDA-Public Use
  Company Number: US-BAYER-2015-127937

PATIENT
  Age: 22 Year
  Sex: Male

DRUGS (1)
  1. GADAVIST [Suspect]
     Active Substance: GADOBUTROL
     Indication: NUCLEAR MAGNETIC RESONANCE IMAGING
     Dosage: 10.5 ML, ONCE
     Dates: start: 20150408, end: 20150408

REACTIONS (1)
  - Vomiting [None]

NARRATIVE: CASE EVENT DATE: 20150408
